FAERS Safety Report 9020684 (Version 1)
Quarter: 2013Q1

REPORT INFORMATION
  Report Type: Spontaneous
  Country: US (occurrence: US)
  Receive Date: 20130119
  Receipt Date: 20130119
  Transmission Date: 20140127
  Serious: No
  Sender: FDA-Public Use
  Company Number: US-ALLERGAN-1206440US

PATIENT
  Sex: Female

DRUGS (3)
  1. BOTOX COSMETIC [Suspect]
     Indication: SKIN WRINKLING
     Dosage: UNK
     Route: 030
     Dates: start: 200606, end: 200606
  2. BOTOX COSMETIC [Suspect]
     Dosage: UNK
     Dates: start: 2011, end: 2011
  3. BOTOX COSMETIC [Suspect]
     Dosage: UNK
     Route: 030
     Dates: start: 20120523, end: 20120523

REACTIONS (8)
  - Aspiration [Unknown]
  - Dysphagia [Unknown]
  - Choking [Not Recovered/Not Resolved]
  - Vocal cord disorder [Unknown]
  - Dysphagia [Unknown]
  - Cough [Unknown]
  - Vomiting [Unknown]
  - Dysphonia [Not Recovered/Not Resolved]
